FAERS Safety Report 5291203-5 (Version None)
Quarter: 2007Q2

REPORT INFORMATION
  Report Type: 
  Country: None (occurrence: None)
  Receive Date: 20070409
  Receipt Date: 20070329
  Transmission Date: 20071010
  Serious: Yes (Other)
  Sender: FDA-Public Use
  Company Number: US-SHR-US-2007-011016

PATIENT

DRUGS (2)
  1. MAGNEVIST [Suspect]
     Dosage: 40 ML, 1 DOSE
     Dates: start: 20011026, end: 20011026
  2. OMNISCAN [Concomitant]
     Dosage: UNK, 1 DOSE
     Dates: start: 20020919, end: 20020919

REACTIONS (1)
  - NEPHROGENIC FIBROSING DERMOPATHY [None]
